FAERS Safety Report 6540223-9 (Version None)
Quarter: 2010Q1

REPORT INFORMATION
  Report Type: 
  Country: None (occurrence: None)
  Receive Date: 20100115
  Receipt Date: 20100107
  Transmission Date: 20100710
  Serious: Yes (Other)
  Sender: FDA-Public Use
  Company Number: US-PFIZER INC-2010002823

PATIENT
  Sex: Female

DRUGS (3)
  1. NICOTROL [Suspect]
  2. CHANTIX [Suspect]
  3. WELLBUTRIN [Suspect]

REACTIONS (4)
  - EXPIRED DRUG ADMINISTERED [None]
  - HOMICIDAL IDEATION [None]
  - SUICIDAL BEHAVIOUR [None]
  - TOBACCO USER [None]
